FAERS Safety Report 20227518 (Version 2)
Quarter: 2021Q4

REPORT INFORMATION
  Report Type: Spontaneous
  Country: ES (occurrence: ES)
  Receive Date: 20211224
  Receipt Date: 20211229
  Transmission Date: 20220304
  Serious: Yes (Hospitalization, Other)
  Sender: FDA-Public Use
  Company Number: ES-NOVARTISPH-NVSC2021ES294139

PATIENT
  Sex: Female

DRUGS (4)
  1. DEFERASIROX [Suspect]
     Active Substance: DEFERASIROX
     Indication: Congenital aplastic anaemia
     Dosage: 23 MG/KG, QD
     Route: 065
  2. DEFERASIROX [Suspect]
     Active Substance: DEFERASIROX
     Indication: Chelation therapy
  3. PREDNISONE [Suspect]
     Active Substance: PREDNISONE
     Indication: Congenital aplastic anaemia
     Dosage: UNK
     Route: 065
  4. DEFEROXAMINE [Suspect]
     Active Substance: DEFEROXAMINE MESYLATE
     Indication: Congenital aplastic anaemia
     Dosage: UNK
     Route: 065

REACTIONS (4)
  - Injection site abscess [Unknown]
  - Acute kidney injury [Recovered/Resolved]
  - Renal tubular dysfunction [Recovered/Resolved]
  - Gastroenteritis [Unknown]
